FAERS Safety Report 13405844 (Version 1)
Quarter: 2017Q2

REPORT INFORMATION
  Report Type: Spontaneous
  Country: JP (occurrence: JP)
  Receive Date: 20170405
  Receipt Date: 20170405
  Transmission Date: 20170830
  Serious: Yes (Hospitalization)
  Sender: FDA-Public Use
  Company Number: JP-GLAXOSMITHKLINE-JP2017JPN025592

PATIENT
  Age: 88 Year
  Sex: Male

DRUGS (6)
  1. MUCOSOLVAN (AMBROXOL HYDROCHLORIDE) [Concomitant]
     Active Substance: AMBROXOL HYDROCHLORIDE
     Dosage: UNK
  2. SERETIDE [Suspect]
     Active Substance: FLUTICASONE PROPIONATE\SALMETEROL XINAFOATE
     Indication: BRONCHITIS CHRONIC
     Dosage: UNK
     Route: 055
     Dates: start: 20170207, end: 201702
  3. KLARICID [Concomitant]
     Active Substance: CLARITHROMYCIN
     Dosage: UNK
  4. ARICEPT [Concomitant]
     Active Substance: DONEPEZIL HYDROCHLORIDE
     Dosage: UNK
  5. JANUVIA [Concomitant]
     Active Substance: SITAGLIPTIN PHOSPHATE
     Dosage: UNK
  6. ACTONEL [Concomitant]
     Active Substance: RISEDRONATE SODIUM
     Dosage: UNK

REACTIONS (2)
  - Malaise [Not Recovered/Not Resolved]
  - Dyspnoea [Not Recovered/Not Resolved]

NARRATIVE: CASE EVENT DATE: 201702
